FAERS Safety Report 14717929 (Version 1)
Quarter: 2018Q2

REPORT INFORMATION
  Report Type: Spontaneous
  Country: US (occurrence: US)
  Receive Date: 20180404
  Receipt Date: 20180404
  Transmission Date: 20180711
  Serious: No
  Sender: FDA-Public Use
  Company Number: US-SA-2018SA052012

PATIENT
  Sex: Female

DRUGS (3)
  1. DUPIXENT [Suspect]
     Active Substance: DUPILUMAB
     Indication: DERMATITIS ATOPIC
     Route: 058
     Dates: start: 20180111
  2. DUPIXENT [Suspect]
     Active Substance: DUPILUMAB
     Indication: DERMATITIS ATOPIC
     Route: 058
  3. GLUCOPHAGE [Concomitant]
     Active Substance: METFORMIN HYDROCHLORIDE

REACTIONS (5)
  - Nausea [Unknown]
  - Malaise [Not Recovered/Not Resolved]
  - Body temperature decreased [Not Recovered/Not Resolved]
  - Eyelid margin crusting [Unknown]
  - Drug ineffective [Unknown]
